FAERS Safety Report 4907875-8 (Version None)
Quarter: 2006Q1

REPORT INFORMATION
  Report Type: 
  Country: None (occurrence: None)
  Receive Date: 20060208
  Receipt Date: 20060125
  Transmission Date: 20060701
  Serious: Yes (Hospitalization)
  Sender: FDA-Public Use
  Company Number: 2006P1000066

PATIENT
  Age: 72 Year
  Sex: Male
  Weight: 87 kg

DRUGS (6)
  1. RETEPLASE     (RETEPLASE) [Suspect]
     Indication: ACUTE MYOCARDIAL INFARCTION
     Dosage: 5 IU;1X;IV
     Route: 042
     Dates: start: 20041113, end: 20041113
  2. ABCIXIMAB [Suspect]
     Indication: ACUTE MYOCARDIAL INFARCTION
     Dosage: 10.9 ML;1X;IV ; 4.0 ML;QH;IV
     Route: 042
     Dates: start: 20041113, end: 20041113
  3. ABCIXIMAB [Suspect]
     Indication: ACUTE MYOCARDIAL INFARCTION
     Dosage: 10.9 ML;1X;IV ; 4.0 ML;QH;IV
     Route: 042
     Dates: start: 20041113, end: 20041113
  4. HEHPEARIN [Concomitant]
  5. ASPIRIN [Concomitant]
  6. ACE INHIBITOR NOS [Concomitant]

REACTIONS (3)
  - CARDIAC FAILURE CONGESTIVE [None]
  - CORONARY ARTERY STENOSIS [None]
  - EJECTION FRACTION DECREASED [None]
